FAERS Safety Report 21513288 (Version 1)
Quarter: 2022Q4

REPORT INFORMATION
  Report Type: Spontaneous
  Country: US (occurrence: None)
  Receive Date: 20221026
  Receipt Date: 20221026
  Transmission Date: 20230113
  Serious: Yes (Life-Threatening, Other)
  Sender: FDA-Public Use
  Company Number: None

PATIENT
  Age: 63 Year
  Sex: Female
  Weight: 114.75 kg

DRUGS (18)
  1. EMGALITY [Suspect]
     Active Substance: GALCANEZUMAB-GNLM
     Indication: Migraine prophylaxis
     Dates: start: 20221025, end: 20221025
  2. WELLBUTRIN XL [Concomitant]
     Active Substance: BUPROPION HYDROCHLORIDE
  3. lisdexamfetamine (VYVANSE) [Concomitant]
  4. TRINTELLIX [Concomitant]
     Active Substance: VORTIOXETINE HYDROBROMIDE
  5. zolmitriptan (ZOMIG) [Concomitant]
  6. nasal solution [Concomitant]
  7. epinephrine (EPIPEN) [Concomitant]
  8. cycloSPORINE (RESTASIS) [Concomitant]
  9. ophthalmic emulsion [Concomitant]
  10. ALPRAZolam (XANAX XR) [Concomitant]
  11. AMBIEN [Concomitant]
     Active Substance: ZOLPIDEM TARTRATE
  12. FOSAMAX [Concomitant]
     Active Substance: ALENDRONATE SODIUM
  13. ZOFRAN [Concomitant]
     Active Substance: ONDANSETRON HYDROCHLORIDE
  14. desloratadine (Clarinex [Concomitant]
  15. azelastine (ASTELIN) [Concomitant]
  16. levalbuterol (XOPENEX [Concomitant]
  17. nebulizer solution [Concomitant]
  18. VENTOLIN [Concomitant]
     Active Substance: ALBUTEROL SULFATE

REACTIONS (6)
  - Flushing [None]
  - Feeling hot [None]
  - Swelling face [None]
  - Lip swelling [None]
  - Eye swelling [None]
  - Anaphylactic shock [None]

NARRATIVE: CASE EVENT DATE: 20221025
